FAERS Safety Report 10689755 (Version 6)
Quarter: 2016Q4

REPORT INFORMATION
  Report Type: Spontaneous
  Country: US (occurrence: US)
  Receive Date: 20150105
  Receipt Date: 20161220
  Transmission Date: 20170206
  Serious: Yes (Other)
  Sender: FDA-Public Use
  Company Number: US-PFIZER INC-2015001568

PATIENT
  Age: 60 Year
  Sex: Female

DRUGS (18)
  1. VENTOLIN HFA [Concomitant]
     Active Substance: ALBUTEROL SULFATE
     Indication: ASTHMA
     Dosage: UNK UNK, AS NEEDED (108 (90 BASE) MCG/ACT INHALER INHALE 1-2 PUFFS EVERY 4 HOURS)
  2. BENTYL [Concomitant]
     Active Substance: DICYCLOMINE HYDROCHLORIDE
     Dosage: 20 MG, 3X/DAY
     Route: 048
  3. XANAX [Concomitant]
     Active Substance: ALPRAZOLAM
     Indication: PANIC DISORDER
  4. ZOLOFT [Concomitant]
     Active Substance: SERTRALINE HYDROCHLORIDE
     Dosage: 200 MG, 1X/DAY  (NIGHTLY)
     Route: 048
  5. PRILOSEC [Concomitant]
     Active Substance: OMEPRAZOLE MAGNESIUM
     Dosage: 20 MG, DAILY
     Route: 048
  6. KLONOPIN [Concomitant]
     Active Substance: CLONAZEPAM
     Dosage: 4 MG, DAILY (TAKING 1 MG BID AND 2 MG AT NIGHT)
  7. LYRICA [Suspect]
     Active Substance: PREGABALIN
     Indication: FIBROMYALGIA
     Dosage: 100 MG, UNK
  8. LYRICA [Suspect]
     Active Substance: PREGABALIN
     Dosage: 100 MG, 2X/DAY
     Route: 048
  9. XANAX [Concomitant]
     Active Substance: ALPRAZOLAM
     Indication: PANIC ATTACK
     Dosage: 0.25 MG, AS NEEDED (TWICE DAILY )
     Route: 048
  10. ABILIFY [Concomitant]
     Active Substance: ARIPIPRAZOLE
     Dosage: 2 MG, DAILY
     Route: 048
  11. CITRACAL + D [Concomitant]
     Active Substance: CALCIUM CITRATE\VITAMIN D
     Dosage: UNK, 3X/DAY (250 IU VITAMIN D 315 MG CALCIUM PER TABLET)
     Route: 048
  12. LAMICTAL [Concomitant]
     Active Substance: LAMOTRIGINE
     Dosage: 300 MG, 2X/DAY
     Route: 048
  13. SYNTHROID [Concomitant]
     Active Substance: LEVOTHYROXINE SODIUM
     Dosage: 112 UG, DAILY (SIX DAYS PER WEEK, NONE ON SUNDAY)
  14. CARAFATE [Concomitant]
     Active Substance: SUCRALFATE
     Dosage: 1 G, DAILY (AT NIGHT)
     Route: 048
  15. NORCO [Concomitant]
     Active Substance: ACETAMINOPHEN\HYDROCODONE BITARTRATE
     Indication: OSTEOARTHRITIS
     Dosage: UNK UNK, AS NEEDED ([HYDROCODONE BITARTRATE 10MG]/ [PARACETAMOL325MG] 1-2 TABLETS EVERY 6 HOURS)
     Route: 048
  16. IMITREX [Concomitant]
     Active Substance: SUMATRIPTAN SUCCINATE
     Indication: HEADACHE
     Dosage: 100 MG, AS NEEDED (1 TAB PO X1 PRN HEADACHE; OK TO REPEAT X1 IF HEADACHE PERSISTS AFTER 2 HOURS)
     Route: 048
  17. VITAMIN D [Concomitant]
     Active Substance: CHOLECALCIFEROL
     Dosage: 2000 IU, DAILY
     Route: 048
  18. ZONEGRAN [Concomitant]
     Active Substance: ZONISAMIDE
     Dosage: 75 MG, 1X/DAY (NIGHTLY)
     Route: 048

REACTIONS (6)
  - Respiratory tract infection [Unknown]
  - Malaise [Unknown]
  - Condition aggravated [Unknown]
  - Fall [Unknown]
  - Pain [Unknown]
  - Gait disturbance [Unknown]
